FAERS Safety Report 6115549-3 (Version None)
Quarter: 2009Q1

REPORT INFORMATION
  Report Type: 
  Country: None (occurrence: None)
  Receive Date: 20090313
  Receipt Date: 20090304
  Transmission Date: 20090719
  Serious: Yes (Death, Congenital Anomaly)
  Sender: FDA-Public Use
  Company Number: FR-ROCHE-619167

PATIENT

DRUGS (1)
  1. ISOTRETINOIN [Suspect]
     Indication: DRUG USE FOR UNKNOWN INDICATION
     Dosage: FREQUENCY REPORTED : PER DAY
     Route: 064
     Dates: start: 20041001, end: 20050301

REACTIONS (2)
  - BRAIN MALFORMATION [None]
  - CONGENITAL ANOMALY [None]
